FAERS Safety Report 21286191 (Version 4)
Quarter: 2022Q3

REPORT INFORMATION
  Report Type: Spontaneous
  Country: JP (occurrence: JP)
  Receive Date: 20220902
  Receipt Date: 20220930
  Transmission Date: 20221026
  Serious: Yes (Hospitalization, Other)
  Sender: FDA-Public Use
  Company Number: JP-GLAXOSMITHKLINE-JP2022JPN125097

PATIENT

DRUGS (2)
  1. NUCALA [Suspect]
     Active Substance: MEPOLIZUMAB
     Indication: Asthma
     Dosage: 100 MG, ONCE A MONTH
  2. DUPILUMAB [Concomitant]
     Active Substance: DUPILUMAB
     Indication: Asthma

REACTIONS (14)
  - Bile duct stenosis [Recovered/Resolved]
  - Autoimmune pancreatitis [Recovered/Resolved]
  - Cholangitis sclerosing [Unknown]
  - Immunoglobulin G4 related disease [Recovered/Resolved]
  - Asthma [Unknown]
  - Pneumonia [Recovered/Resolved]
  - Dysstasia [Unknown]
  - Mobility decreased [Unknown]
  - Quadriplegia [Unknown]
  - Bedridden [Unknown]
  - Hypoaesthesia [Unknown]
  - Neuropathy peripheral [Unknown]
  - Eosinophilic granulomatosis with polyangiitis [Unknown]
  - Pyrexia [Unknown]
